FAERS Safety Report 10088146 (Version 2)
Quarter: 2014Q2

REPORT INFORMATION
  Report Type: Spontaneous
  Country: NL (occurrence: NL)
  Receive Date: 20140421
  Receipt Date: 20140421
  Transmission Date: 20141212
  Serious: Yes (Other)
  Sender: FDA-Public Use
  Company Number: NL-ROCHE-1375676

PATIENT
  Age: 36 Year
  Sex: Female

DRUGS (2)
  1. HERCEPTIN [Suspect]
     Indication: PRODUCT USED FOR UNKNOWN INDICATION
     Route: 058
     Dates: start: 20140203
  2. HERCEPTIN [Suspect]
     Dosage: FIRST ADMINISTRATION 300MG, AFTER THAT 150MG WEEKLY
     Route: 042
     Dates: start: 20131024

REACTIONS (2)
  - Musculoskeletal stiffness [Not Recovered/Not Resolved]
  - Skin disorder [Unknown]
